FAERS Safety Report 21136972 (Version 4)
Quarter: 2022Q3

REPORT INFORMATION
  Report Type: Report from Study
  Country: NL (occurrence: NL)
  Receive Date: 20220727
  Receipt Date: 20220920
  Transmission Date: 20221027
  Serious: Yes (Other)
  Sender: FDA-Public Use
  Company Number: NL-BAYER-2022P008507

PATIENT
  Age: 21 Year
  Sex: Female

DRUGS (1)
  1. MIRENA [Suspect]
     Active Substance: LEVONORGESTREL
     Indication: Contraception
     Dosage: 20?G/DAY
     Route: 015
     Dates: start: 20220422, end: 20220719

REACTIONS (6)
  - Device breakage [Recovered/Resolved]
  - Device expulsion [Recovered/Resolved]
  - Procedural pain [Recovered/Resolved]
  - Device physical property issue [Recovered/Resolved]
  - Device deployment issue [None]
  - Complication of device removal [Recovered/Resolved]

NARRATIVE: CASE EVENT DATE: 20220422
